FAERS Safety Report 8024735-7 (Version None)
Quarter: 2012Q1

REPORT INFORMATION
  Report Type: 
  Country: None (occurrence: None)
  Receive Date: 20120105
  Receipt Date: 20111228
  Transmission Date: 20120608
  Serious: Yes (Hospitalization)
  Sender: FDA-Public Use
  Company Number: DE-ACTELION-A-CH2011-59042

PATIENT
  Age: 30 Year
  Sex: Female

DRUGS (2)
  1. TRACLEER [Suspect]
     Indication: PULMONARY ARTERIAL HYPERTENSION
     Dosage: UNK
     Route: 048
     Dates: start: 20080601
  2. SILDENAFIL [Concomitant]

REACTIONS (7)
  - PULMONARY HYPERTENSION [None]
  - SYNCOPE [None]
  - RIGHT VENTRICULAR FAILURE [None]
  - RENAL FAILURE [None]
  - LACTIC ACIDOSIS [None]
  - LUNG TRANSPLANT [None]
  - EXTRACORPOREAL MEMBRANE OXYGENATION [None]
